FAERS Safety Report 19823077 (Version 7)
Quarter: 2022Q3

REPORT INFORMATION
  Report Type: Spontaneous
  Country: CA (occurrence: CA)
  Receive Date: 20210913
  Receipt Date: 20220714
  Transmission Date: 20221027
  Serious: Yes (Hospitalization, Other)
  Sender: FDA-Public Use
  Company Number: CA-PFIZER INC-202101047866

PATIENT
  Age: 57 Year
  Sex: Female

DRUGS (2)
  1. BOSULIF [Suspect]
     Active Substance: BOSUTINIB MONOHYDRATE
     Indication: Philadelphia positive chronic myeloid leukaemia
     Dosage: 400 MG, ONCE DAILY WITH FOOD
     Route: 048
     Dates: start: 20181001
  2. BOSULIF [Suspect]
     Active Substance: BOSUTINIB MONOHYDRATE
     Dosage: 400 MG, ONCE DAILY WITH FOOD
     Route: 048
     Dates: start: 20220608

REACTIONS (3)
  - Pulmonary thrombosis [Unknown]
  - Illness [Unknown]
  - Dialysis [Unknown]

NARRATIVE: CASE EVENT DATE: 20220101
